FAERS Safety Report 13027413 (Version 1)
Quarter: 2016Q4

REPORT INFORMATION
  Report Type: Spontaneous
  Country: PL (occurrence: PL)
  Receive Date: 20161214
  Receipt Date: 20161214
  Transmission Date: 20170207
  Serious: Yes (Other)
  Sender: FDA-Public Use
  Company Number: PL-TEVA-719117ACC

PATIENT
  Sex: Male

DRUGS (1)
  1. FINLEPSIN [Suspect]
     Active Substance: CARBAMAZEPINE
     Dosage: 400 MILLIGRAM DAILY; 2X1 TABLET FOR 5 DAYS, 2X2 TABLETS THEN
     Route: 048
     Dates: start: 20160728, end: 20160810

REACTIONS (12)
  - Pyrexia [Unknown]
  - Decreased appetite [Unknown]
  - Dizziness [Unknown]
  - Somnolence [Unknown]
  - Asthenia [Unknown]
  - Hyperhidrosis [Unknown]
  - Chills [Unknown]
  - Arthralgia [Unknown]
  - Blood pressure decreased [Unknown]
  - Lymphadenopathy [Unknown]
  - Headache [Unknown]
  - Syncope [Unknown]
